FAERS Safety Report 22017906 (Version 1)
Quarter: 2023Q1

REPORT INFORMATION
  Report Type: Spontaneous
  Country: US (occurrence: None)
  Receive Date: 20230217
  Receipt Date: 20230217
  Transmission Date: 20230418
  Serious: Yes (Hospitalization)
  Sender: FDA-Public Use
  Company Number: None

PATIENT
  Sex: Male

DRUGS (10)
  1. PERTZYE [Suspect]
     Active Substance: PANCRELIPASE AMYLASE\PANCRELIPASE LIPASE\PANCRELIPASE PROTEASE
     Indication: Cystic fibrosis
     Route: 048
     Dates: start: 20220818
  2. ALBUTEROL [Concomitant]
  3. CAYSTON INH [Concomitant]
  4. CREON CAP [Concomitant]
  5. DEKAS PLUS CAP [Concomitant]
  6. FLONASE SPR [Concomitant]
  7. IBUPROFEN TAB [Concomitant]
  8. LUNESTA TAB [Concomitant]
  9. PULMOZYME SOL [Concomitant]
  10. TRIKAFTA [Concomitant]
     Active Substance: ELEXACAFTOR\IVACAFTOR\TEZACAFTOR

REACTIONS (1)
  - Hernia [None]
